FAERS Safety Report 18073643 (Version 1)
Quarter: 2020Q3

REPORT INFORMATION
  Report Type: Spontaneous
  Country: GB (occurrence: GB)
  Receive Date: 20200727
  Receipt Date: 20200727
  Transmission Date: 20201103
  Serious: Yes (Other)
  Sender: FDA-Public Use
  Company Number: GB-MYLANLABS-2020M1066351

PATIENT
  Age: 55 Year
  Sex: Male
  Weight: 127 kg

DRUGS (11)
  1. FUCIBET [Concomitant]
     Dosage: UNK
  2. OMEPRAZOLE. [Concomitant]
     Active Substance: OMEPRAZOLE
     Dosage: 20 MILLIGRAM
  3. ACETYLSALICYLIC ACID [Concomitant]
     Active Substance: ASPIRIN
     Dosage: 75 MILLIGRAM
  4. SERTRALINE [Concomitant]
     Active Substance: SERTRALINE HYDROCHLORIDE
     Dosage: UNK
  5. FUROSEMIDE. [Concomitant]
     Active Substance: FUROSEMIDE
     Dosage: 40 MILLIGRAM
  6. CLOPIDOGREL [Concomitant]
     Active Substance: CLOPIDOGREL BISULFATE
     Dosage: 75 MILLIGRAM
  7. GLYCERYL TRINITRATE [Concomitant]
     Active Substance: NITROGLYCERIN
     Dosage: UNK
  8. NAPROXEN. [Concomitant]
     Active Substance: NAPROXEN
     Dosage: 250 MILLIGRAM
  9. TERBINAFINE. [Suspect]
     Active Substance: TERBINAFINE
     Indication: SKIN INFECTION
     Dosage: 250 MILLIGRAM
     Route: 048
     Dates: start: 20200702, end: 20200702
  10. BISOPROLOL [Concomitant]
     Active Substance: BISOPROLOL
     Dosage: 1.25 MILLIGRAM
  11. ATORVASTATIN [Concomitant]
     Active Substance: ATORVASTATIN
     Dosage: 40 MILLIGRAM

REACTIONS (3)
  - Discomfort [Not Recovered/Not Resolved]
  - Ear discomfort [Not Recovered/Not Resolved]
  - Hypoacusis [Not Recovered/Not Resolved]

NARRATIVE: CASE EVENT DATE: 20200702
